FAERS Safety Report 8095820-9 (Version None)
Quarter: 2012Q1

REPORT INFORMATION
  Report Type: 
  Country: None (occurrence: None)
  Receive Date: 20120129
  Receipt Date: 20111209
  Transmission Date: 20120608
  Serious: No
  Sender: FDA-Public Use
  Company Number: US-ABBOTT-11P-163-0883323-00

PATIENT
  Sex: Female
  Weight: 81.72 kg

DRUGS (4)
  1. OXYCODONE HCL [Concomitant]
     Indication: ARTHRALGIA
  2. METHOTREXATE [Suspect]
     Indication: RHEUMATOID ARTHRITIS
     Route: 048
     Dates: start: 20110901
  3. HUMIRA [Suspect]
     Indication: RHEUMATOID ARTHRITIS
     Route: 058
     Dates: start: 20111201
  4. PREDNISONE TAB [Suspect]
     Indication: RHEUMATOID ARTHRITIS
     Dates: start: 20110801

REACTIONS (2)
  - INJECTION SITE HAEMATOMA [None]
  - MYALGIA [None]
